FAERS Safety Report 7306905-6 (Version None)
Quarter: 2011Q1

REPORT INFORMATION
  Report Type: 
  Country: None (occurrence: None)
  Receive Date: 20110223
  Receipt Date: 20110208
  Transmission Date: 20110831
  Serious: Yes (Other)
  Sender: FDA-Public Use
  Company Number: US-CELGENEUS-163-21880-11022038

PATIENT
  Sex: Female
  Weight: 99.88 kg

DRUGS (2)
  1. DEXAMETHASONE [Concomitant]
     Route: 065
  2. REVLIMID [Suspect]
     Route: 048

REACTIONS (1)
  - ADVERSE DRUG REACTION [None]
